FAERS Safety Report 25791143 (Version 2)
Quarter: 2025Q4

REPORT INFORMATION
  Report Type: Report from Study
  Country: US (occurrence: US)
  Receive Date: 20250911
  Receipt Date: 20251111
  Transmission Date: 20260117
  Serious: No
  Sender: ACADIA PHARMACEUTICALS
  Company Number: US-ACADIA PHARMACEUTICALS INC.-ACA-2025-TRF-010025

PATIENT
  Sex: Female

DRUGS (2)
  1. DAYBUE [Suspect]
     Active Substance: TROFINETIDE
     Indication: Rett syndrome
     Dosage: 40 ML IN DAYTIME, 15 ML AT NIGHT AND GOING UP BY 5 ML  EVERY 2 WEEKS
  2. DAYBUE [Suspect]
     Active Substance: TROFINETIDE
     Dosage: 40ML IN THE MORNING AND 20ML AT NIGHT

REACTIONS (2)
  - Poor quality sleep [Not Recovered/Not Resolved]
  - Incorrect dose administered [Not Recovered/Not Resolved]
